FAERS Safety Report 19427467 (Version 1)
Quarter: 2021Q2

REPORT INFORMATION
  Report Type: Report from Study
  Country: CA (occurrence: CA)
  Receive Date: 20210617
  Receipt Date: 20210617
  Transmission Date: 20210717
  Serious: Yes (Other)
  Sender: FDA-Public Use
  Company Number: CA-TAKEDA-2021TUS027509

PATIENT
  Age: 81 Year
  Sex: Female
  Weight: 42.18 kg

DRUGS (8)
  1. CUVITRU [Suspect]
     Active Substance: HUMAN IMMUNOGLOBULIN G
     Dosage: 4 GRAM
     Route: 065
     Dates: start: 20210423
  2. DEXAMETHASONE. [Concomitant]
     Active Substance: DEXAMETHASONE
     Indication: NEOPLASM MALIGNANT
     Dosage: 2 DOSAGE FORM, 2/WEEK
     Route: 065
  3. CYCLOPHOSPHAMIDE. [Concomitant]
     Active Substance: CYCLOPHOSPHAMIDE
     Indication: NEOPLASM MALIGNANT
     Dosage: 4 DOSAGE FORM, 1/WEEK
     Route: 065
  4. POMALIDOMIDE [Concomitant]
     Active Substance: POMALIDOMIDE
     Indication: NEOPLASM MALIGNANT
     Dosage: UNK
     Route: 065
  5. PREDNISONE. [Concomitant]
     Active Substance: PREDNISONE
     Indication: PNEUMONIA
     Dosage: UNK
     Route: 065
     Dates: start: 202103
  6. CUVITRU [Suspect]
     Active Substance: HUMAN IMMUNOGLOBULIN G
     Indication: SECONDARY IMMUNODEFICIENCY
     Dosage: 4 GRAM, 1/WEEK
     Route: 058
     Dates: start: 20210423
  7. CUVITRU [Suspect]
     Active Substance: HUMAN IMMUNOGLOBULIN G
     Dosage: 4 GRAM, 1/WEEK
     Route: 065
     Dates: start: 20210423
  8. ONDANSETRON [Concomitant]
     Active Substance: ONDANSETRON

REACTIONS (22)
  - Dyspnoea [Not Recovered/Not Resolved]
  - Oxygen saturation increased [Not Recovered/Not Resolved]
  - Cognitive disorder [Unknown]
  - Oedema peripheral [Recovered/Resolved]
  - Product packaging difficult to open [Unknown]
  - Blindness [Not Recovered/Not Resolved]
  - Infusion site swelling [Unknown]
  - Headache [Not Recovered/Not Resolved]
  - Varicose vein [Not Recovered/Not Resolved]
  - Blood pressure increased [Unknown]
  - Cerebrovascular accident [Not Recovered/Not Resolved]
  - Limb discomfort [Not Recovered/Not Resolved]
  - Respiratory rate increased [Not Recovered/Not Resolved]
  - Fatigue [Not Recovered/Not Resolved]
  - Joint swelling [Not Recovered/Not Resolved]
  - Muscle spasms [Not Recovered/Not Resolved]
  - Malaise [Not Recovered/Not Resolved]
  - Inadequate aseptic technique in use of product [Unknown]
  - Respiratory rate decreased [Not Recovered/Not Resolved]
  - Breath sounds abnormal [Not Recovered/Not Resolved]
  - Oxygen saturation decreased [Not Recovered/Not Resolved]
  - Nausea [Recovering/Resolving]

NARRATIVE: CASE EVENT DATE: 202104
